FAERS Safety Report 6900294-4 (Version None)
Quarter: 2010Q3

REPORT INFORMATION
  Report Type: 
  Country: None (occurrence: None)
  Receive Date: 20100803
  Receipt Date: 20100719
  Transmission Date: 20110219
  Serious: Yes (Death)
  Sender: FDA-Public Use
  Company Number: PHHY2010DE33173

PATIENT
  Sex: Female
  Weight: 57 kg

DRUGS (5)
  1. ALISKIREN ALI+ [Suspect]
     Dosage: UNK
  2. HYDROCHLOROTHIAZIDE [Suspect]
     Dosage: 12.5 MG/ DAY
     Dates: start: 20070220
  3. VERAPAMIL [Concomitant]
     Dosage: 160 MG/DAY
     Dates: start: 20060814
  4. BETA BLOCKING AGENTS [Concomitant]
  5. BISOPROLOL [Concomitant]
     Dosage: 10 MG/DAY

REACTIONS (1)
  - CARDIAC FAILURE [None]
